FAERS Safety Report 14191428 (Version 2)
Quarter: 2018Q1

REPORT INFORMATION
  Report Type: Spontaneous
  Country: AU (occurrence: AU)
  Receive Date: 20171115
  Receipt Date: 20180119
  Transmission Date: 20180508
  Serious: Yes (Hospitalization)
  Sender: FDA-Public Use
  Company Number: AU-NAPPMUNDI-GBR-2017-0050659

PATIENT
  Sex: Male

DRUGS (1)
  1. NORSPAN [Suspect]
     Active Substance: BUPRENORPHINE
     Indication: PRODUCT USED FOR UNKNOWN INDICATION
     Dosage: 10 MCG, Q1H
     Route: 062
     Dates: end: 20171101

REACTIONS (5)
  - Sleep disorder [Not Recovered/Not Resolved]
  - Application site erythema [Not Recovered/Not Resolved]
  - Application site discharge [Not Recovered/Not Resolved]
  - Application site pain [Not Recovered/Not Resolved]
  - Application site haemorrhage [Not Recovered/Not Resolved]

NARRATIVE: CASE EVENT DATE: 20171101
